FAERS Safety Report 6919722-3 (Version None)
Quarter: 2010Q3

REPORT INFORMATION
  Report Type: 
  Country: None (occurrence: None)
  Receive Date: 20100811
  Receipt Date: 20100621
  Transmission Date: 20110219
  Serious: No
  Sender: FDA-Public Use
  Company Number: US-BRISTOL-MYERS SQUIBB COMPANY-15160146

PATIENT
  Sex: Female

DRUGS (2)
  1. ERBITUX [Suspect]
     Route: 042
  2. IXEMPRA KIT [Suspect]

REACTIONS (1)
  - EXTRAVASATION [None]
